FAERS Safety Report 19465835 (Version 1)
Quarter: 2021Q2

REPORT INFORMATION
  Report Type: Spontaneous
  Country: US (occurrence: US)
  Receive Date: 20210625
  Receipt Date: 20210625
  Transmission Date: 20210717
  Serious: No
  Sender: FDA-Public Use
  Company Number: US-ASTRAZENECA-2021A507813

PATIENT
  Sex: Male
  Weight: 114.3 kg

DRUGS (1)
  1. FARXIGA [Suspect]
     Active Substance: DAPAGLIFLOZIN PROPANEDIOL
     Indication: CARDIAC FAILURE CONGESTIVE
     Route: 048
     Dates: start: 202104, end: 20210420

REACTIONS (7)
  - Rash macular [Not Recovered/Not Resolved]
  - Scratch [Not Recovered/Not Resolved]
  - Skin laceration [Not Recovered/Not Resolved]
  - Discharge [Not Recovered/Not Resolved]
  - Feeling jittery [Not Recovered/Not Resolved]
  - Skin discolouration [Not Recovered/Not Resolved]
  - Fatigue [Not Recovered/Not Resolved]
